FAERS Safety Report 4893409-3 (Version None)
Quarter: 2006Q1

REPORT INFORMATION
  Report Type: 
  Country: None (occurrence: None)
  Receive Date: 20060127
  Receipt Date: 20060120
  Transmission Date: 20060701
  Serious: Yes (Hospitalization)
  Sender: FDA-Public Use
  Company Number: FR-AVENTIS-200610371EU

PATIENT
  Age: 63 Year
  Sex: Female

DRUGS (6)
  1. FLUDEX [Suspect]
     Indication: ESSENTIAL HYPERTENSION
     Route: 048
     Dates: start: 20050314, end: 20050414
  2. NOVATREX ^ACHE^ [Concomitant]
  3. SPECIAFOLDINE [Concomitant]
  4. CORTANCYL [Concomitant]
  5. ACTONEL [Concomitant]
     Route: 048
  6. CONTRAMAL [Concomitant]

REACTIONS (3)
  - BLOOD CREATINE PHOSPHOKINASE INCREASED [None]
  - BLOOD LACTATE DEHYDROGENASE INCREASED [None]
  - TRANSAMINASES INCREASED [None]
